FAERS Safety Report 8024226-3 (Version None)
Quarter: 2012Q1

REPORT INFORMATION
  Report Type: 
  Country: None (occurrence: None)
  Receive Date: 20120105
  Receipt Date: 20120103
  Transmission Date: 20120608
  Serious: Yes (Death, Other)
  Sender: FDA-Public Use
  Company Number: PHHY2011CA113204

PATIENT
  Sex: Male

DRUGS (7)
  1. DIAMICRON [Concomitant]
     Dosage: 30 MG DAILY
  2. ENTROPHEN [Concomitant]
     Dosage: 325 MG, DAILY
  3. FLOMAX [Concomitant]
     Dosage: 0.4 MG, BID
  4. METFORMIN HCL [Concomitant]
     Dosage: 500 MG, TID
  5. LIPITOR [Concomitant]
     Dosage: 10 MG, QHS
  6. METOPROLOL SUCCINATE [Concomitant]
     Dosage: 7.5 MG, Q12H
     Route: 048
  7. CLOZARIL [Suspect]
     Indication: SCHIZOPHRENIA, PARANOID TYPE
     Dosage: 450 MG, UNK
     Route: 048
     Dates: start: 20020128

REACTIONS (2)
  - FALL [None]
  - DEATH [None]
